FAERS Safety Report 25816540 (Version 2)
Quarter: 2025Q3

REPORT INFORMATION
  Report Type: Spontaneous
  Country: EU (occurrence: EU)
  Receive Date: 20250918
  Receipt Date: 20250926
  Transmission Date: 20251020
  Serious: Yes (Hospitalization, Other)
  Sender: NOVARTIS
  Company Number: EU-002147023-NVSC2025ES144192

PATIENT
  Age: 41 Year
  Sex: Female

DRUGS (2)
  1. IPTACOPAN [Suspect]
     Active Substance: IPTACOPAN
     Indication: Atypical haemolytic uraemic syndrome
     Dosage: 200 MG, Q12H
     Route: 048
     Dates: start: 20241001
  2. RAVULIZUMAB [Concomitant]
     Active Substance: RAVULIZUMAB
     Indication: Product used for unknown indication
     Route: 065

REACTIONS (13)
  - Pneumonia [Unknown]
  - Influenza [Recovering/Resolving]
  - Pyrexia [Recovering/Resolving]
  - Cough [Recovering/Resolving]
  - Secretion discharge [Recovering/Resolving]
  - Diarrhoea [Recovering/Resolving]
  - Vomiting [Recovering/Resolving]
  - Blood creatinine increased [Recovering/Resolving]
  - Lung consolidation [Recovering/Resolving]
  - C-reactive protein increased [Recovering/Resolving]
  - Anuria [Not Recovered/Not Resolved]
  - Infection susceptibility increased [Unknown]
  - Off label use [Unknown]
